FAERS Safety Report 25304050 (Version 2)
Quarter: 2025Q2

REPORT INFORMATION
  Report Type: Spontaneous
  Country: JP (occurrence: JP)
  Receive Date: 20250513
  Receipt Date: 20250520
  Transmission Date: 20250716
  Serious: Yes (Other)
  Sender: RANBAXY
  Company Number: JP-SUN PHARMACEUTICAL INDUSTRIES LTD-2025RR-507238

PATIENT
  Age: 8 Decade
  Sex: Male

DRUGS (6)
  1. DONEPEZIL [Interacting]
     Active Substance: DONEPEZIL
     Indication: Antipsychotic therapy
     Dosage: 3 MILLIGRAM, DAILY
     Route: 065
  2. DONEPEZIL [Interacting]
     Active Substance: DONEPEZIL
     Indication: Cognitive disorder
     Dosage: 5 MILLIGRAM, DAILY
     Route: 065
  3. RISPERIDONE [Interacting]
     Active Substance: RISPERIDONE
     Indication: Psychotic disorder
     Dosage: 4 MILLIGRAM, DAILY
     Route: 065
  4. RISPERIDONE [Interacting]
     Active Substance: RISPERIDONE
     Indication: Depression
  5. TRAZODONE [Interacting]
     Active Substance: TRAZODONE HYDROCHLORIDE
     Indication: Psychotic disorder
     Dosage: 25 MILLIGRAM, DAILY
     Route: 065
  6. TRAZODONE [Interacting]
     Active Substance: TRAZODONE HYDROCHLORIDE
     Indication: Depression

REACTIONS (2)
  - Neuroleptic malignant syndrome [Recovered/Resolved]
  - Drug interaction [Unknown]
